FAERS Safety Report 4884386-X (Version None)
Quarter: 2006Q1

REPORT INFORMATION
  Report Type: 
  Country: None (occurrence: None)
  Receive Date: 20060117
  Receipt Date: 20060117
  Transmission Date: 20060701
  Serious: Yes (Hospitalization)
  Sender: FDA-Public Use
  Company Number: None

PATIENT
  Age: 72 Year
  Sex: Female

DRUGS (1)
  1. PHENYTOIN [Suspect]
     Indication: CONVULSION
     Dosage: 300 MG IV INFUSION
     Route: 042
     Dates: start: 20010801, end: 20030801

REACTIONS (4)
  - ECCHYMOSIS [None]
  - ERYTHEMA [None]
  - GANGRENE [None]
  - INFUSION SITE REACTION [None]
